FAERS Safety Report 8523511-6 (Version None)
Quarter: 2012Q3

REPORT INFORMATION
  Report Type: 
  Country: None (occurrence: None)
  Receive Date: 20120720
  Receipt Date: 20120712
  Transmission Date: 20120928
  Serious: Yes (Other)
  Sender: FDA-Public Use
  Company Number: EC-JNJFOC-20120707196

PATIENT
  Age: 32 Year
  Sex: Male

DRUGS (3)
  1. REMICADE [Suspect]
     Indication: PSORIASIS
     Route: 042
  2. CALCITRIOL [Concomitant]
     Route: 065
  3. CORTICOSTEROIDS [Concomitant]
     Route: 061

REACTIONS (1)
  - VIITH NERVE PARALYSIS [None]
